FAERS Safety Report 9257475 (Version 2)
Quarter: 2013Q3

REPORT INFORMATION
  Report Type: Spontaneous
  Country: US (occurrence: US)
  Receive Date: 20130426
  Receipt Date: 20130813
  Transmission Date: 20140515
  Serious: Yes (Hospitalization, Disabling, Other)
  Sender: FDA-Public Use
  Company Number: US-ASTRAZENECA-2013SE27675

PATIENT
  Age: 43 Year
  Sex: Female
  Weight: 90.7 kg

DRUGS (28)
  1. NEXIUM [Suspect]
     Indication: GASTROOESOPHAGEAL REFLUX DISEASE
     Route: 048
     Dates: start: 20060920
  2. NEXIUM [Suspect]
     Indication: GASTROOESOPHAGEAL REFLUX DISEASE
     Route: 048
     Dates: start: 20080315
  3. PRILOSEC [Suspect]
     Route: 048
  4. ZANTAC [Concomitant]
  5. TAGAMET [Concomitant]
  6. TUMS [Concomitant]
  7. CITRACAL [Concomitant]
  8. DIVALPROEX [Concomitant]
     Dosage: 250-500
  9. FISH OIL [Concomitant]
  10. HYDROXYZINE [Concomitant]
  11. CRANBERRY [Concomitant]
  12. MULTI VITAMIN [Concomitant]
  13. TRAZODONE [Concomitant]
  14. FLUOXETINE [Concomitant]
  15. PROAIR HFA [Concomitant]
     Dosage: 90 MCG, 2 PUFFS ONCE A DAY
     Route: 055
  16. DICYCLOMINE [Concomitant]
  17. BUSPIRONE [Concomitant]
     Dates: start: 20080319
  18. EFFEXOR [Concomitant]
     Dates: start: 20080319
  19. LAMICTAL [Concomitant]
     Dates: start: 20060920
  20. LAMICTAL [Concomitant]
     Dates: start: 20080315
  21. CLONAZEPAM [Concomitant]
     Dates: start: 20090401
  22. GABAPENTIN [Concomitant]
     Dates: start: 20080411
  23. ZOLPIDEM [Concomitant]
     Dates: start: 20090310
  24. LYRICA [Concomitant]
     Dates: start: 20090304
  25. GUANFACINE [Concomitant]
     Dates: start: 20100420
  26. LEVOTHYROXINE [Concomitant]
     Dates: start: 20080315
  27. FUROSEMIDE [Concomitant]
     Dates: start: 20080315
  28. CYMBALTA [Concomitant]
     Dates: start: 20080315

REACTIONS (12)
  - Lower limb fracture [Unknown]
  - Impaired work ability [Unknown]
  - Hernia [Unknown]
  - Uterine disorder [Unknown]
  - Cerebrovascular accident [Unknown]
  - Bone disorder [Unknown]
  - Osteoporosis [Unknown]
  - Arthritis [Unknown]
  - Multiple fractures [Unknown]
  - Meniscal degeneration [Unknown]
  - Exostosis [Unknown]
  - Osteoarthritis [Unknown]
